FAERS Safety Report 9792045 (Version 3)
Quarter: 2014Q1

REPORT INFORMATION
  Report Type: Spontaneous
  Country: DE (occurrence: DE)
  Receive Date: 20140102
  Receipt Date: 20140304
  Transmission Date: 20141002
  Serious: Yes (Other)
  Sender: FDA-Public Use
  Company Number: DE-009507513-1312DEU012268

PATIENT
  Age: 42 Year
  Sex: Female

DRUGS (3)
  1. IMPLANON [Suspect]
     Indication: CONTRACEPTION
     Dosage: UNK
     Route: 058
     Dates: start: 2007, end: 2014
  2. IMPLANON [Suspect]
     Dosage: UNK
     Route: 059
     Dates: start: 2011, end: 2014
  3. IMPLANON [Suspect]
     Dosage: UNK
     Route: 058
     Dates: start: 2004, end: 2007

REACTIONS (7)
  - Breast cancer [Not Recovered/Not Resolved]
  - Medical device complication [Recovered/Resolved]
  - Incorrect drug administration duration [Unknown]
  - Overdose [Unknown]
  - Device difficult to use [Recovered/Resolved]
  - Tumour excision [Unknown]
  - Radiotherapy to breast [Unknown]
